FAERS Safety Report 7591948-8 (Version None)
Quarter: 2011Q3

REPORT INFORMATION
  Report Type: 
  Country: None (occurrence: None)
  Receive Date: 20110706
  Receipt Date: 20110628
  Transmission Date: 20111222
  Serious: Yes (Hospitalization)
  Sender: FDA-Public Use
  Company Number: CZ-ABBOTT-11P-217-0731441-00

PATIENT
  Sex: Female
  Weight: 58 kg

DRUGS (7)
  1. MEDROL [Concomitant]
     Indication: PRODUCT USED FOR UNKNOWN INDICATION
  2. FOLIC ACID [Concomitant]
     Indication: PRODUCT USED FOR UNKNOWN INDICATION
  3. METHOTREXATE [Concomitant]
     Indication: PRODUCT USED FOR UNKNOWN INDICATION
  4. ORTANOL [Concomitant]
     Indication: PRODUCT USED FOR UNKNOWN INDICATION
  5. CALCICHEW [Concomitant]
     Indication: PRODUCT USED FOR UNKNOWN INDICATION
  6. TRIPRIM [Concomitant]
     Indication: PRODUCT USED FOR UNKNOWN INDICATION
  7. HUMIRA [Suspect]
     Indication: RHEUMATOID ARTHRITIS
     Route: 058

REACTIONS (8)
  - CUBITAL TUNNEL SYNDROME [None]
  - PERIPHERAL NERVE TRANSPOSITION [None]
  - HAND DEFORMITY [None]
  - RHEUMATOID ARTHRITIS [None]
  - ELBOW DEFORMITY [None]
  - FRACTURE [None]
  - FINGER DEFORMITY [None]
  - CARPAL TUNNEL SYNDROME [None]
